FAERS Safety Report 6314496-1 (Version None)
Quarter: 2009Q3

REPORT INFORMATION
  Report Type: 
  Country: None (occurrence: None)
  Receive Date: 20090819
  Receipt Date: 20090810
  Transmission Date: 20100115
  Serious: Yes (Hospitalization)
  Sender: FDA-Public Use
  Company Number: FR-ASTRAZENECA-2009SE07422

PATIENT
  Age: 8363 Day
  Sex: Male

DRUGS (5)
  1. XYLOCAINE 5% [Suspect]
     Indication: NASAL CAVITY PACKING
     Route: 045
     Dates: start: 20090310, end: 20090310
  2. NAPHAZOLINE HCL [Suspect]
     Indication: NASAL CAVITY PACKING
  3. DAFALGAN [Concomitant]
     Dates: start: 20090307
  4. TOPALGIC [Concomitant]
     Dosage: ONE TABLET THREE TIMES A DAY
     Dates: start: 20090307
  5. BRISTOPEN [Concomitant]
     Dates: start: 20090307

REACTIONS (4)
  - COLD SWEAT [None]
  - MALAISE [None]
  - MUSCULOSKELETAL STIFFNESS [None]
  - VOMITING [None]
